FAERS Safety Report 5310400-3 (Version None)
Quarter: 2007Q2

REPORT INFORMATION
  Report Type: 
  Country: None (occurrence: None)
  Receive Date: 20070427
  Receipt Date: 20070418
  Transmission Date: 20071010
  Serious: Yes (Other)
  Sender: FDA-Public Use
  Company Number: US-JNJFOC-20070403820

PATIENT
  Sex: Female
  Weight: 56.25 kg

DRUGS (3)
  1. REMICADE [Suspect]
     Indication: CROHN'S DISEASE
     Dosage: Q8WKS
     Route: 042
  2. ASACOL [Concomitant]
  3. HYDROCHLOROTHIAZIDE [Concomitant]
     Indication: FLUID RETENTION

REACTIONS (1)
  - JOINT SWELLING [None]
